FAERS Safety Report 14540110 (Version 1)
Quarter: 2018Q1

REPORT INFORMATION
  Report Type: Spontaneous
  Country: GR (occurrence: GR)
  Receive Date: 20180216
  Receipt Date: 20180216
  Transmission Date: 20180509
  Serious: Yes (Hospitalization)
  Sender: FDA-Public Use
  Company Number: GR-COVIS PHARMA B.V.-2018COV00136

PATIENT
  Age: 65 Year
  Sex: Male

DRUGS (7)
  1. CITALOPRAM [Suspect]
     Active Substance: CITALOPRAM HYDROBROMIDE
     Indication: DEPRESSION
     Dosage: 10 MG, UNK
     Route: 065
  2. OMEPRAZOLE MAGNESIUM. [Suspect]
     Active Substance: OMEPRAZOLE MAGNESIUM
     Route: 048
  3. UNSPECIFIED ANGIOTENSIN CONVERTING ENZYME INHIBITOR [Concomitant]
     Route: 065
  4. ACENOCUMAROL [Concomitant]
     Active Substance: ACENOCOUMAROL
     Route: 065
  5. UNSPECIFIED ALDOSTERONE ANTAGONIST [Concomitant]
     Route: 065
  6. ASPIRIN. [Concomitant]
     Active Substance: ASPIRIN
     Route: 065
  7. UNSPECIFIED BETA-BLOCKER [Concomitant]
     Active Substance: UNSPECIFIED INGREDIENT
     Route: 065

REACTIONS (2)
  - Serotonin syndrome [Recovered/Resolved]
  - Drug interaction [Recovered/Resolved]
